FAERS Safety Report 18903975 (Version 2)
Quarter: 2021Q2

REPORT INFORMATION
  Report Type: Spontaneous
  Country: US (occurrence: US)
  Receive Date: 20210217
  Receipt Date: 20210402
  Transmission Date: 20210717
  Serious: Yes (Other)
  Sender: FDA-Public Use
  Company Number: US-GLAXOSMITHKLINE-US2021GSK030080

PATIENT
  Sex: Female

DRUGS (4)
  1. RANITIDINE. [Suspect]
     Active Substance: RANITIDINE
     Indication: GASTRIC HAEMORRHAGE
     Dosage: 150 MG, WE
     Route: 065
     Dates: start: 200005, end: 200801
  2. ZANTAC [Suspect]
     Active Substance: RANITIDINE HYDROCHLORIDE
     Indication: GASTRIC HAEMORRHAGE
     Dosage: 150 MG, WE
     Route: 065
     Dates: start: 200001, end: 200005
  3. RANITIDINE. [Suspect]
     Active Substance: RANITIDINE
     Indication: GASTRIC HAEMORRHAGE
     Dosage: 150 MG, WE
     Route: 065
     Dates: start: 200005, end: 200801
  4. ZANTAC [Suspect]
     Active Substance: RANITIDINE HYDROCHLORIDE
     Indication: GASTRIC HAEMORRHAGE
     Dosage: 150 MG, WE
     Route: 065
     Dates: start: 200001, end: 200005

REACTIONS (1)
  - Colorectal cancer [Unknown]
